FAERS Safety Report 15756979 (Version 1)
Quarter: 2018Q4

REPORT INFORMATION
  Report Type: Spontaneous
  Country: US (occurrence: US)
  Receive Date: 20181206
  Receipt Date: 20181206
  Transmission Date: 20190205
  Serious: No
  Sender: FDA-Public Use
  Company Number: None

PATIENT
  Age: 54 Year

DRUGS (3)
  1. LETAIRIS [Suspect]
     Active Substance: AMBRISENTAN
     Indication: PULMONARY HYPERTENSION
     Route: 048
     Dates: start: 20180503
  2. LETAIRIS [Suspect]
     Active Substance: AMBRISENTAN
     Indication: CONGENITAL CARDIOVASCULAR ANOMALY
     Route: 048
     Dates: start: 20180503
  3. LETAIRIS [Suspect]
     Active Substance: AMBRISENTAN
     Indication: CONNECTIVE TISSUE DISORDER
     Route: 048
     Dates: start: 20180503

REACTIONS (2)
  - Dyspnoea [None]
  - Pain [None]

NARRATIVE: CASE EVENT DATE: 20181114
